FAERS Safety Report 5975721-X (Version None)
Quarter: 2008Q4

REPORT INFORMATION
  Report Type: 
  Country: None (occurrence: None)
  Receive Date: 20081202
  Receipt Date: 20081121
  Transmission Date: 20090506
  Serious: Yes (Other)
  Sender: FDA-Public Use
  Company Number: PHEH2008US08269

PATIENT
  Sex: Female

DRUGS (1)
  1. VIVELLE-DOT [Suspect]
     Dosage: UNK
     Dates: start: 20010301, end: 20010501

REACTIONS (3)
  - ARTHRITIS [None]
  - CARDIAC MURMUR [None]
  - HYPERTENSION [None]
